FAERS Safety Report 8319573-1 (Version None)
Quarter: 2012Q2

REPORT INFORMATION
  Report Type: 
  Country: None (occurrence: None)
  Receive Date: 20120427
  Receipt Date: 20120423
  Transmission Date: 20120825
  Serious: Yes (Death)
  Sender: FDA-Public Use
  Company Number: PHHY2012US035407

PATIENT
  Age: 28 Year
  Sex: Female

DRUGS (4)
  1. BUSPIRONE HCL [Suspect]
  2. OLANZAPINE [Suspect]
  3. ETHANOL [Suspect]
  4. CARBAMAZEPINE [Suspect]

REACTIONS (1)
  - COMPLETED SUICIDE [None]
